FAERS Safety Report 4449405-3 (Version None)
Quarter: 2004Q3

REPORT INFORMATION
  Report Type: 
  Country: None (occurrence: None)
  Receive Date: 20040909
  Receipt Date: 20040818
  Transmission Date: 20050211
  Serious: Yes (Death)
  Sender: FDA-Public Use
  Company Number: B0342940A

PATIENT
  Age: 45 Year
  Sex: Female

DRUGS (33)
  1. BETAMETHASONE [Suspect]
  2. AUGMENTIN [Suspect]
     Dosage: 1200 MG THREE TIMES PER DAY
  3. SODIUM RABEPRAZOLE (SODIUM RABEPRAZOLE) [Suspect]
  4. METOCLOPRAMIDE [Suspect]
  5. CALCIUM LACTATE GLUCONATE (CALCIUM LACTATE GLUCONATE) [Suspect]
  6. NYSTATIN [Suspect]
     Dosage: 4 ML THREE TIMES PER DAY
  7. CEFACLOR [Suspect]
  8. OMEPRAZOLE [Suspect]
  9. CORTISONE ACETATE [Suspect]
     Dosage: 25 MG TWICE PER DAY
  10. CALCITRIOL [Suspect]
  11. ALUMINUM HYDROXIDE (ALUMINUM HYDROXIDE) [Suspect]
  12. FLUDROCORTISONE ACETATE TAB [Suspect]
     Dosage: 4 ML THREE TIMES PER DAY
  13. LEVOFLOXACIN [Suspect]
  14. FUROSEMIDE [Suspect]
  15. CANREONATE [Suspect]
  16. DIAZEPAM [Suspect]
  17. HALOPERIDOL [Suspect]
  18. ITROCONAZOLE [Suspect]
  19. PANTOPRAZOLE (PANTOPRAZOLE) [Suspect]
  20. CALCIUM GLUCONATE [Suspect]
  21. CANREONATE [Concomitant]
     Dosage: INTRAVENOUS
     Route: 042
  22. FUROSEMIDE [Suspect]
     Dosage: INTRAVENOUS
  23. HYDROCORTISONE H-SUCC. [Concomitant]
  24. RANITIDINE HYDROCHLORIDE [Concomitant]
  25. RIFAMYCIN [Concomitant]
  26. GENTAMICIN SULFATE [Concomitant]
  27. PROVIDONE-IODINE [Concomitant]
  28. CHLORPHENAMINE [Concomitant]
  29. ALBUMIN (HUMAN) [Concomitant]
  30. INSULIN [Concomitant]
  31. DEXTROSE [Concomitant]
  32. CA SALT + MG SALT [Concomitant]
  33. POTASSIUM CHLORIDE [Concomitant]

REACTIONS (15)
  - AORTIC VALVE SCLEROSIS [None]
  - BRAIN OEDEMA [None]
  - BRONCHOPNEUMONIA [None]
  - CACHEXIA [None]
  - CALCINOSIS [None]
  - CEREBRAL DISORDER [None]
  - ENTEROCOCCAL INFECTION [None]
  - HEPATIC FIBROSIS [None]
  - LUNG INFILTRATION [None]
  - LYMPHOCYTIC INFILTRATION [None]
  - PSEUDOMONAS INFECTION [None]
  - RENAL HAEMORRHAGE [None]
  - SEPTIC SHOCK [None]
  - STAPHYLOCOCCAL INFECTION [None]
  - TOXIC EPIDERMAL NECROLYSIS [None]
